FAERS Safety Report 5609726-5 (Version None)
Quarter: 2008Q1

REPORT INFORMATION
  Report Type: 
  Country: None (occurrence: None)
  Receive Date: 20080131
  Receipt Date: 20070911
  Transmission Date: 20080703
  Serious: No
  Sender: FDA-Public Use
  Company Number: US-BAYER-200712905BCC

PATIENT
  Age: 60 Year
  Sex: Female
  Weight: 71 kg

DRUGS (6)
  1. ALEVE COLD AND SINUS [Suspect]
     Indication: NASOPHARYNGITIS
     Dosage: AS USED: 220/120 MG  UNIT DOSE: 220 MG
     Route: 048
     Dates: start: 20070909
  2. ALEVE COLD AND SINUS [Suspect]
     Dosage: AS USED: 220/120 MG  UNIT DOSE: 220 MG
     Route: 048
     Dates: start: 20070910, end: 20070910
  3. ALEVE [Suspect]
     Indication: PAIN
     Route: 048
  4. PREMARIN [Concomitant]
  5. BONIVA [Concomitant]
  6. VITAMINS [Concomitant]

REACTIONS (1)
  - RASH GENERALISED [None]
